FAERS Safety Report 23057605 (Version 1)
Quarter: 2023Q4

REPORT INFORMATION
  Report Type: Spontaneous
  Country: ES (occurrence: ES)
  Receive Date: 20231012
  Receipt Date: 20231012
  Transmission Date: 20240109
  Serious: Yes (Death, Other)
  Sender: FDA-Public Use
  Company Number: None

PATIENT

DRUGS (3)
  1. CARBOPLATIN [Interacting]
     Active Substance: CARBOPLATIN
     Indication: Lung neoplasm
     Dosage: UNK
     Route: 042
     Dates: start: 20230630, end: 20230721
  2. PACLITAXEL [Interacting]
     Active Substance: PACLITAXEL
     Indication: Lung neoplasm
     Dosage: UNK
     Route: 042
     Dates: start: 20230630, end: 20230721
  3. KEYTRUDA [Interacting]
     Active Substance: PEMBROLIZUMAB
     Indication: Lung neoplasm
     Dosage: 200 MILLIGRAM, 3W
     Route: 042
     Dates: start: 20230630, end: 20230721

REACTIONS (3)
  - Myopericarditis [Fatal]
  - Immune-mediated myositis [Fatal]
  - Immune-mediated hepatitis [Fatal]

NARRATIVE: CASE EVENT DATE: 20230805
